FAERS Safety Report 16734475 (Version 3)
Quarter: 2019Q3

REPORT INFORMATION
  Report Type: Spontaneous
  Country: US (occurrence: US)
  Receive Date: 20190823
  Receipt Date: 20190908
  Transmission Date: 20191005
  Serious: Yes (Hospitalization)
  Sender: FDA-Public Use
  Company Number: PHEH2019US034808

PATIENT
  Sex: Female

DRUGS (1)
  1. PIQRAY [Suspect]
     Active Substance: ALPELISIB
     Indication: BREAST CANCER
     Dosage: 300 MG, QD
     Route: 048
     Dates: start: 20190817

REACTIONS (7)
  - Pulmonary oedema [Recovering/Resolving]
  - Swelling face [Recovering/Resolving]
  - Urticaria [Recovering/Resolving]
  - Rash generalised [Recovering/Resolving]
  - Rash pruritic [Unknown]
  - Rash [Recovering/Resolving]
  - Dyspnoea [Recovering/Resolving]

NARRATIVE: CASE EVENT DATE: 20190818
